FAERS Safety Report 24338842 (Version 1)
Quarter: 2024Q3

REPORT INFORMATION
  Report Type: Spontaneous
  Country: SI (occurrence: SI)
  Receive Date: 20240919
  Receipt Date: 20240919
  Transmission Date: 20241017
  Serious: Yes (Hospitalization)
  Sender: NOVITIUM PHARMA
  Company Number: SI-NOVITIUMPHARMA-2024SINVP01862

PATIENT
  Sex: Female

DRUGS (11)
  1. RISPERIDONE [Suspect]
     Active Substance: RISPERIDONE
     Indication: Psychotic disorder
  2. RISPERIDONE [Suspect]
     Active Substance: RISPERIDONE
     Dosage: DOSE INCREASED
  3. RISPERIDONE [Suspect]
     Active Substance: RISPERIDONE
     Dosage: DOSE INCREASED
  4. RISPERIDONE [Suspect]
     Active Substance: RISPERIDONE
     Dosage: DOSE REDUCED
  5. RISPERIDONE [Suspect]
     Active Substance: RISPERIDONE
     Dosage: DOSE REDUCED
  6. FLUPHENAZINE [Suspect]
     Active Substance: FLUPHENAZINE
     Indication: Psychotic disorder
  7. FLUPHENAZINE [Suspect]
     Active Substance: FLUPHENAZINE
     Dosage: DOSE REDUCED
  8. AMOXICILLIN\CLAVULANIC ACID [Concomitant]
     Active Substance: AMOXICILLIN\CLAVULANIC ACID
     Indication: Antibiotic therapy
  9. AZITHROMYCIN [Concomitant]
     Active Substance: AZITHROMYCIN
     Indication: Antibiotic therapy
  10. ARIPIPRAZOLE [Concomitant]
     Active Substance: ARIPIPRAZOLE
     Indication: Psychotic disorder
  11. ARIPIPRAZOLE [Concomitant]
     Active Substance: ARIPIPRAZOLE
     Dosage: INCREASED

REACTIONS (3)
  - Extrapyramidal disorder [Recovering/Resolving]
  - Akathisia [Recovering/Resolving]
  - Treatment noncompliance [Unknown]
